FAERS Safety Report 24243192 (Version 1)
Quarter: 2024Q3

REPORT INFORMATION
  Report Type: Spontaneous
  Country: US (occurrence: US)
  Receive Date: 20240823
  Receipt Date: 20240823
  Transmission Date: 20241017
  Serious: No
  Sender: AMGEN
  Company Number: US-AMGEN-USASP2024163308

PATIENT
  Age: 40 Year
  Sex: Male

DRUGS (11)
  1. PREDNISONE [Suspect]
     Active Substance: PREDNISONE
     Indication: Eosinophilia
     Dosage: 8 TO 10 MILLIGRAM, QD
     Route: 065
  2. PREDNISONE [Suspect]
     Active Substance: PREDNISONE
     Dosage: 60 MILLIGRAM, QD
     Route: 065
  3. PREDNISONE [Suspect]
     Active Substance: PREDNISONE
     Dosage: 5 MILLIGRAM, QD
     Route: 065
  4. PREDNISONE [Suspect]
     Active Substance: PREDNISONE
     Dosage: 3 MILLIGRAM, QD
     Route: 065
  5. PREDNISONE [Suspect]
     Active Substance: PREDNISONE
     Dosage: 2.5 MILLIGRAM, QD
     Route: 065
  6. IMATINIB MESYLATE [Concomitant]
     Active Substance: IMATINIB MESYLATE
     Indication: Eosinophilia
     Dosage: 100 MILLIGRAM, QD
     Route: 065
  7. IMATINIB MESYLATE [Concomitant]
     Active Substance: IMATINIB MESYLATE
     Dosage: 300 MILLIGRAM, QD
     Route: 065
  8. IMATINIB MESYLATE [Concomitant]
     Active Substance: IMATINIB MESYLATE
     Dosage: 200 MILLIGRAM, QD
     Route: 065
  9. IMATINIB MESYLATE [Concomitant]
     Active Substance: IMATINIB MESYLATE
     Dosage: 100 MILLIGRAM, QD
     Route: 065
  10. IMATINIB MESYLATE [Concomitant]
     Active Substance: IMATINIB MESYLATE
     Dosage: 100 MILLIGRAM, QOD
     Route: 065
  11. IMATINIB MESYLATE [Concomitant]
     Active Substance: IMATINIB MESYLATE
     Dosage: 50 MILLIGRAM, QOD
     Route: 065

REACTIONS (9)
  - Influenza like illness [Unknown]
  - Swelling [Unknown]
  - Weight increased [Unknown]
  - Fatigue [Unknown]
  - Lethargy [Unknown]
  - Muscle tightness [Unknown]
  - Rash macular [Unknown]
  - Oedema [Unknown]
  - Off label use [Unknown]
